FAERS Safety Report 15986641 (Version 2)
Quarter: 2019Q1

REPORT INFORMATION
  Report Type: Spontaneous
  Country: US (occurrence: US)
  Receive Date: 20190220
  Receipt Date: 20190226
  Transmission Date: 20190418
  Serious: Yes (Other)
  Sender: FDA-Public Use
  Company Number: US-ASTRAZENECA-2018SF48224

PATIENT
  Age: 17001 Day
  Sex: Female
  Weight: 102.1 kg

DRUGS (29)
  1. PRILOSEC OTC [Suspect]
     Active Substance: OMEPRAZOLE MAGNESIUM
     Route: 048
     Dates: start: 20090101, end: 20150101
  2. TERCONAZOLE. [Concomitant]
     Active Substance: TERCONAZOLE
  3. BUPROPION. [Concomitant]
     Active Substance: BUPROPION
  4. PROMETHAZINE [Concomitant]
     Active Substance: PROMETHAZINE\PROMETHAZINE HYDROCHLORIDE
  5. MELOXICAM. [Concomitant]
     Active Substance: MELOXICAM
  6. VICTOZA [Concomitant]
     Active Substance: LIRAGLUTIDE
  7. PREVACID [Suspect]
     Active Substance: LANSOPRAZOLE
     Route: 065
     Dates: start: 20000101, end: 20090101
  8. AMLODIPINE [Concomitant]
     Active Substance: AMLODIPINE BESYLATE
  9. DICLOFENAC [Concomitant]
     Active Substance: DICLOFENAC
  10. PREDNISONE. [Concomitant]
     Active Substance: PREDNISONE
  11. ZOLPIDEM [Concomitant]
     Active Substance: ZOLPIDEM\ZOLPIDEM TARTRATE
  12. ACYCLOVIR. [Concomitant]
     Active Substance: ACYCLOVIR
  13. TRAMADOL. [Concomitant]
     Active Substance: TRAMADOL
  14. PRILOSEC [Suspect]
     Active Substance: OMEPRAZOLE MAGNESIUM
     Route: 048
  15. METFORMIN [Concomitant]
     Active Substance: METFORMIN HYDROCHLORIDE
  16. PRILOSEC [Suspect]
     Active Substance: OMEPRAZOLE MAGNESIUM
     Route: 048
     Dates: start: 20090101, end: 20150101
  17. PROTONIX [Suspect]
     Active Substance: PANTOPRAZOLE SODIUM
     Route: 065
     Dates: start: 20060101, end: 20150101
  18. CARVEDILOL. [Concomitant]
     Active Substance: CARVEDILOL
  19. PANTOPRAZOLE [Concomitant]
     Active Substance: PANTOPRAZOLE
     Route: 048
     Dates: start: 20161014
  20. FAMOTIDINE. [Concomitant]
     Active Substance: FAMOTIDINE
  21. FLUOXETINE [Concomitant]
     Active Substance: FLUOXETINE HYDROCHLORIDE
  22. NYSTATIN. [Concomitant]
     Active Substance: NYSTATIN
  23. PRILOSEC OTC [Suspect]
     Active Substance: OMEPRAZOLE MAGNESIUM
     Route: 048
  24. LISINOPRIL. [Concomitant]
     Active Substance: LISINOPRIL
  25. AZITHROMYCIN ANHYDROUS. [Concomitant]
     Active Substance: AZITHROMYCIN ANHYDROUS
  26. KETOCONAZOLE. [Concomitant]
     Active Substance: KETOCONAZOLE
  27. NEXIUM [Suspect]
     Active Substance: ESOMEPRAZOLE MAGNESIUM
     Route: 048
  28. LOSARTAN. [Concomitant]
     Active Substance: LOSARTAN
  29. AMOXICILLIN. [Concomitant]
     Active Substance: AMOXICILLIN

REACTIONS (2)
  - Renal injury [Unknown]
  - Chronic kidney disease [Unknown]

NARRATIVE: CASE EVENT DATE: 20180621
